FAERS Safety Report 9685423 (Version 1)
Quarter: 2013Q4

REPORT INFORMATION
  Report Type: Spontaneous
  Country: US (occurrence: None)
  Receive Date: 20131112
  Receipt Date: 20131112
  Transmission Date: 20140711
  Serious: Yes (Life-Threatening)
  Sender: FDA-Public Use
  Company Number: None

PATIENT
  Age: 56 Year
  Sex: Male
  Weight: 83.01 kg

DRUGS (4)
  1. ESCITALOPRAM [Suspect]
     Indication: ANXIETY
     Dosage: 1 DOSE ONCE DAILY TAKEN BY MOUTH
     Route: 048
     Dates: start: 20120626, end: 20120713
  2. ESCITALOPRAM [Suspect]
     Indication: IRRITABILITY
     Dosage: 1 DOSE ONCE DAILY TAKEN BY MOUTH
     Route: 048
     Dates: start: 20120626, end: 20120713
  3. ESCITALOPRAM [Suspect]
     Dosage: 1 DOSE ONCE DAILY TAKEN BY MOUTH
     Route: 048
     Dates: start: 20120626, end: 20120713
  4. ESCITALOPRAM [Suspect]
     Indication: TIC
     Dosage: 1 DOSE ONCE DAILY TAKEN BY MOUTH
     Route: 048
     Dates: start: 20120626, end: 20120713

REACTIONS (6)
  - Product substitution issue [None]
  - Anxiety [None]
  - Tic [None]
  - Irritability [None]
  - Suicidal ideation [None]
  - Condition aggravated [None]
